FAERS Safety Report 10181276 (Version 1)
Quarter: 2014Q2

REPORT INFORMATION
  Report Type: Spontaneous
  Country: US (occurrence: US)
  Receive Date: 20140519
  Receipt Date: 20140519
  Transmission Date: 20141212
  Serious: No
  Sender: FDA-Public Use
  Company Number: US-AMGEN INC.-USASP2014031831

PATIENT
  Age: 72 Year
  Sex: Female

DRUGS (3)
  1. PROLIA [Suspect]
     Indication: OSTEOPOROSIS POSTMENOPAUSAL
     Dosage: UNK
     Route: 065
  2. MORPHINE [Suspect]
     Indication: PAIN
     Route: 065
  3. OXYCODONE [Suspect]
     Indication: PAIN
     Route: 065

REACTIONS (5)
  - Toothache [Unknown]
  - Tooth disorder [Unknown]
  - Somnolence [Unknown]
  - Pain [Unknown]
  - Memory impairment [Unknown]
